FAERS Safety Report 9372874 (Version 1)
Quarter: 2013Q2

REPORT INFORMATION
  Report Type: Report from Study
  Country: US (occurrence: US)
  Receive Date: 20130627
  Receipt Date: 20130627
  Transmission Date: 20140414
  Serious: Yes (Other)
  Sender: FDA-Public Use
  Company Number: PHEH2013US013583

PATIENT
  Sex: Male

DRUGS (1)
  1. AFINITOR [Suspect]
     Dosage: 5 MG, QD
     Route: 048

REACTIONS (11)
  - Abasia [Unknown]
  - Confusional state [Unknown]
  - Chills [Unknown]
  - Drug hypersensitivity [Unknown]
  - Dyspnoea [Unknown]
  - Oropharyngeal pain [Unknown]
  - Urticaria [Unknown]
  - Headache [Unknown]
  - Cough [Unknown]
  - Asthenia [Unknown]
  - Joint swelling [Unknown]
